FAERS Safety Report 8371260-X (Version None)
Quarter: 2012Q2

REPORT INFORMATION
  Report Type: 
  Country: None (occurrence: None)
  Receive Date: 20120518
  Receipt Date: 20120514
  Transmission Date: 20120825
  Serious: No
  Sender: FDA-Public Use
  Company Number: US-PFIZER INC-2012117739

PATIENT
  Sex: Female
  Weight: 64.399 kg

DRUGS (3)
  1. PRILOSEC [Concomitant]
     Indication: HIATUS HERNIA
     Dosage: UNK, DAILY
     Dates: start: 20120101
  2. CELEBREX [Suspect]
     Indication: TEMPOROMANDIBULAR JOINT SYNDROME
     Dosage: 200 MG, JUST ONCE IN THE MORNING
     Dates: start: 20120512, end: 20120512
  3. PRILOSEC [Concomitant]
     Indication: GASTROOESOPHAGEAL REFLUX DISEASE

REACTIONS (9)
  - VOMITING [None]
  - DIARRHOEA [None]
  - PAIN [None]
  - HEADACHE [None]
  - DIZZINESS [None]
  - DECREASED APPETITE [None]
  - NAUSEA [None]
  - ABDOMINAL DISCOMFORT [None]
  - ASTHENIA [None]
